FAERS Safety Report 7205856-5 (Version None)
Quarter: 2010Q4

REPORT INFORMATION
  Report Type: 
  Country: None (occurrence: None)
  Receive Date: 20101231
  Receipt Date: 20101221
  Transmission Date: 20110411
  Serious: Yes (Hospitalization)
  Sender: FDA-Public Use
  Company Number: CO-AMGEN-COLCT2010005181

PATIENT

DRUGS (11)
  1. ETANERCEPT [Suspect]
     Indication: RHEUMATOID ARTHRITIS
     Dosage: 50 MG, UNK
     Dates: start: 20090301, end: 20101031
  2. AMLODIPINE BESYLATE [Suspect]
     Indication: HYPERTENSION
     Dosage: 5 MG, 1X/DAY
     Route: 048
     Dates: start: 20080101
  3. HYDROCHLOROTHIAZIDE [Concomitant]
     Indication: HYPERTENSION
     Dosage: 25 MG, 1X/DAY
     Route: 048
  4. LOSARTAN [Concomitant]
     Indication: HYPERTENSION
     Dosage: 50 MG, 1X/DAY
     Route: 048
  5. NPH INSULIN [Concomitant]
     Indication: TYPE 2 DIABETES MELLITUS
     Dosage: 46 IU, 1X/DAY
     Dates: start: 20010101
  6. NPH INSULIN [Concomitant]
     Dosage: 36 IU, 1X/DAY
     Dates: start: 20010101
  7. INSULIN [Concomitant]
     Indication: TYPE 2 DIABETES MELLITUS
     Dosage: 5 IU, 3X/DAY
     Dates: start: 20010101
  8. METFORMIN HCL [Concomitant]
     Indication: TYPE 2 DIABETES MELLITUS
     Dosage: 850 MG, 3X/DAY
  9. CALCITRIOL [Concomitant]
     Indication: SUPPLEMENTATION THERAPY
     Dosage: UNK
  10. CALCIUM CARBONATE [Concomitant]
     Indication: SUPPLEMENTATION THERAPY
     Dosage: UNK
  11. ARAVA [Concomitant]
     Indication: RHEUMATOID ARTHRITIS
     Dosage: 20 MG, 1X/DAY
     Dates: start: 20060101

REACTIONS (4)
  - FUNGAL INFECTION [None]
  - HYPOKALAEMIA [None]
  - KIDNEY INFECTION [None]
  - VARICOSE ULCERATION [None]
